FAERS Safety Report 14705143 (Version 1)
Quarter: 2018Q2

REPORT INFORMATION
  Report Type: Spontaneous
  Country: FR (occurrence: FR)
  Receive Date: 20180402
  Receipt Date: 20180402
  Transmission Date: 20180711
  Serious: Yes (Hospitalization, Other)
  Sender: FDA-Public Use
  Company Number: FR-SA-2018SA056288

PATIENT
  Age: 63 Year
  Sex: Female
  Weight: 71 kg

DRUGS (21)
  1. AFLIBERCEPT [Suspect]
     Active Substance: AFLIBERCEPT
     Indication: COLORECTAL CANCER METASTATIC
     Route: 041
     Dates: start: 20140918, end: 20140918
  2. IRINOTECAN [Suspect]
     Active Substance: IRINOTECAN
     Indication: COLORECTAL CANCER METASTATIC
     Route: 041
     Dates: start: 20141113, end: 20141113
  3. LEUCOVORIN. [Suspect]
     Active Substance: LEUCOVORIN
     Indication: COLORECTAL CANCER METASTATIC
     Route: 041
     Dates: start: 20140918, end: 20140918
  4. LEUCOVORIN. [Suspect]
     Active Substance: LEUCOVORIN
     Indication: COLORECTAL CANCER METASTATIC
     Route: 041
     Dates: start: 20141113, end: 20141113
  5. IRINOTECAN [Suspect]
     Active Substance: IRINOTECAN
     Indication: OFF LABEL USE
     Route: 041
     Dates: start: 20141113, end: 20141113
  6. ALPRAZOLAM. [Concomitant]
     Active Substance: ALPRAZOLAM
  7. DIFFU K [Concomitant]
     Active Substance: POTASSIUM CHLORIDE
  8. SOLUPRED (PREDNISOLONE) [Concomitant]
     Active Substance: PREDNISOLONE
  9. XANAX [Concomitant]
     Active Substance: ALPRAZOLAM
  10. 5 FU [Suspect]
     Active Substance: FLUOROURACIL
     Indication: COLORECTAL CANCER METASTATIC
     Route: 040
     Dates: start: 20140918, end: 20140918
  11. FOLINIC ACID [Concomitant]
     Active Substance: LEUCOVORIN
  12. IRINOTECAN [Suspect]
     Active Substance: IRINOTECAN
     Indication: OFF LABEL USE
     Route: 041
     Dates: start: 20140918, end: 20140918
  13. LOPERAMIDE [Concomitant]
     Active Substance: LOPERAMIDE
  14. PRIMPERAN [Concomitant]
     Active Substance: METOCLOPRAMIDE HYDROCHLORIDE
  15. EMEND [Concomitant]
     Active Substance: APREPITANT
  16. INEXIUM [Concomitant]
     Active Substance: ESOMEPRAZOLE
  17. 5 FU [Suspect]
     Active Substance: FLUOROURACIL
     Indication: COLORECTAL CANCER METASTATIC
     Route: 040
     Dates: start: 20141113, end: 20141113
  18. IRINOTECAN [Suspect]
     Active Substance: IRINOTECAN
     Indication: COLORECTAL CANCER METASTATIC
     Route: 041
     Dates: start: 20140918, end: 20140918
  19. AFLIBERCEPT [Suspect]
     Active Substance: AFLIBERCEPT
     Indication: COLORECTAL CANCER METASTATIC
     Route: 041
     Dates: start: 20141113, end: 20141113
  20. G-CSF [Concomitant]
     Active Substance: GRANULOCYTE COLONY-STIMULATING FACTOR NOS
  21. ATARAX [Concomitant]
     Active Substance: HYDROXYZINE HYDROCHLORIDE

REACTIONS (4)
  - Pulmonary embolism [Not Recovered/Not Resolved]
  - Gastrooesophageal reflux disease [Recovered/Resolved]
  - Off label use [Unknown]
  - Pyrexia [Unknown]

NARRATIVE: CASE EVENT DATE: 201411
